FAERS Safety Report 7903238-1 (Version None)
Quarter: 2011Q4

REPORT INFORMATION
  Report Type: 
  Country: None (occurrence: None)
  Receive Date: 20111109
  Receipt Date: 20111103
  Transmission Date: 20120403
  Serious: Yes (Hospitalization)
  Sender: FDA-Public Use
  Company Number: JP-JNJFOC-20110705919

PATIENT
  Age: 88 Year
  Sex: Female

DRUGS (7)
  1. DIOVAN [Concomitant]
     Indication: PRODUCT USED FOR UNKNOWN INDICATION
     Route: 048
     Dates: start: 20100424
  2. DOGMATYL [Concomitant]
     Indication: DYSPEPSIA
     Route: 048
  3. RISEDRONATE SODIUM [Concomitant]
     Indication: PRODUCT USED FOR UNKNOWN INDICATION
     Route: 048
     Dates: start: 20100424
  4. REMINYL ORO-DISPERSABLE TABLET [Suspect]
     Route: 048
     Dates: start: 20110602, end: 20110703
  5. LIVALO [Concomitant]
     Indication: PRODUCT USED FOR UNKNOWN INDICATION
     Route: 048
     Dates: start: 20100424
  6. REMINYL ORO-DISPERSABLE TABLET [Suspect]
     Indication: DEMENTIA ALZHEIMER'S TYPE
     Route: 048
     Dates: start: 20110507, end: 20110601
  7. ASPIRIN [Concomitant]
     Indication: PRODUCT USED FOR UNKNOWN INDICATION
     Route: 048
     Dates: start: 20100424

REACTIONS (6)
  - DECREASED APPETITE [None]
  - SOMNOLENCE [None]
  - MENTAL STATUS CHANGES [None]
  - DEPRESSED LEVEL OF CONSCIOUSNESS [None]
  - RESTLESSNESS [None]
  - INSOMNIA [None]
